FAERS Safety Report 4732785-9 (Version None)
Quarter: 2005Q3

REPORT INFORMATION
  Report Type: 
  Country: None (occurrence: None)
  Receive Date: 20050801
  Receipt Date: 20050722
  Transmission Date: 20060218
  Serious: Yes (Other)
  Sender: FDA-Public Use
  Company Number: US-GDP-0512079

PATIENT
  Age: 51 Year
  Sex: Male

DRUGS (3)
  1. METROCREAM [Suspect]
     Indication: ROSACEA
     Dosage: 1 APP BID TP
     Route: 061
     Dates: start: 20000101, end: 20050601
  2. METROCREAM [Suspect]
     Indication: ROSACEA
     Dosage: 2 APP BID TP
     Route: 061
     Dates: start: 20011129, end: 20050601
  3. CHOLESTYRAMINE [Concomitant]

REACTIONS (1)
  - NEUROPATHY PERIPHERAL [None]
